FAERS Safety Report 7077630-4 (Version None)
Quarter: 2010Q4

REPORT INFORMATION
  Report Type: 
  Country: None (occurrence: None)
  Receive Date: 20101101
  Receipt Date: 20101022
  Transmission Date: 20110411
  Serious: Yes (Hospitalization)
  Sender: FDA-Public Use
  Company Number: SE-BAYER-201043270GPV

PATIENT
  Age: 64 Year
  Sex: Male

DRUGS (22)
  1. CIPROXIN [Suspect]
     Indication: URINARY TRACT INFECTION
     Route: 048
     Dates: start: 20100728, end: 20100730
  2. RENAGEL [Concomitant]
     Route: 048
  3. AMINO ACID INJ [Concomitant]
     Route: 048
  4. ENALAPRIL ACTAVIS [Concomitant]
     Route: 048
  5. EPREX [Concomitant]
     Route: 042
  6. CANDESARTAN CILEXETIL [Concomitant]
     Route: 048
  7. SIMVASTATIN [Concomitant]
     Route: 048
  8. FOSRENOL [Concomitant]
     Route: 048
  9. ACETYLCYSTEINE [Concomitant]
     Route: 048
  10. LAKTULOS ALTERNOVA [Concomitant]
     Dosage: UNIT DOSE: 667 MG/ML
     Route: 048
  11. ACETAMINOPHEN [Concomitant]
     Route: 048
  12. NITRAZEPAM RECIP [Concomitant]
     Route: 048
  13. POTASSIUM CHLORIDE [Concomitant]
     Route: 048
  14. ETALPHA [Concomitant]
     Route: 048
  15. SPIRONOLAKTON PFIZER [Concomitant]
     Route: 048
  16. FUROSEMID RECIP [Concomitant]
     Route: 048
  17. BENSERAZIDE [Concomitant]
     Dosage: 50 MG/12,5 MG
     Route: 048
  18. ASPIRIN [Concomitant]
     Route: 048
  19. CALCITUGG [Concomitant]
     Route: 048
  20. SELOKEN ZOC/ASA [Concomitant]
     Route: 048
  21. NOVORAPID [Concomitant]
     Route: 058
  22. LEVOTHYROXINE SODIUM [Concomitant]
     Route: 048

REACTIONS (3)
  - COORDINATION ABNORMAL [None]
  - GENERAL PHYSICAL HEALTH DETERIORATION [None]
  - MUSCULAR WEAKNESS [None]
